FAERS Safety Report 4653352-1 (Version None)
Quarter: 2005Q2

REPORT INFORMATION
  Report Type: 
  Country: None (occurrence: None)
  Receive Date: 20050504
  Receipt Date: 20050504
  Transmission Date: 20051028
  Serious: Yes (Death)
  Sender: FDA-Public Use
  Company Number: None

PATIENT
  Sex: Male

DRUGS (2)
  1. TAXOTERE [Suspect]
  2. OXALIPLATIN [Suspect]

REACTIONS (7)
  - BUNDLE BRANCH BLOCK [None]
  - CARDIOPULMONARY FAILURE [None]
  - COMA [None]
  - DRUG TOXICITY [None]
  - HYPOTENSION [None]
  - PNEUMONIA [None]
  - SINUS TACHYCARDIA [None]
